FAERS Safety Report 4990342-3 (Version None)
Quarter: 2006Q2

REPORT INFORMATION
  Report Type: 
  Country: None (occurrence: None)
  Receive Date: 20060503
  Receipt Date: 20050906
  Transmission Date: 20061013
  Serious: Yes (Hospitalization, Other)
  Sender: FDA-Public Use
  Company Number: FR-BRISTOL-MYERS SQUIBB COMPANY-13100128

PATIENT
  Age: 46 Year
  Sex: Male
  Weight: 64 kg

DRUGS (6)
  1. REYATAZ [Suspect]
     Indication: HIV INFECTION
     Route: 048
     Dates: start: 20050228, end: 20050501
  2. NORVIR [Suspect]
     Route: 048
  3. VIREAD [Concomitant]
     Dates: start: 20050201
  4. ZIAGEN [Concomitant]
  5. VIRAMUNE [Concomitant]
     Dates: start: 20050201
  6. ACTOS [Concomitant]
     Dates: start: 20050201

REACTIONS (1)
  - DELIRIUM [None]
